FAERS Safety Report 7814808-3 (Version None)
Quarter: 2011Q4

REPORT INFORMATION
  Report Type: 
  Country: None (occurrence: None)
  Receive Date: 20111013
  Receipt Date: 20111013
  Transmission Date: 20120403
  Serious: Yes (Hospitalization, Disabling, Other)
  Sender: FDA-Public Use
  Company Number: None

PATIENT
  Sex: Female
  Weight: 99.7913 kg

DRUGS (1)
  1. CYMBALTA [Suspect]
     Indication: BIPOLAR II DISORDER
     Dosage: 90, 60, 30 MG  DAILY/AND 30 EVERY OTHER DAY BY MOUTH
     Route: 048
     Dates: start: 20100503, end: 20110712

REACTIONS (23)
  - TINNITUS [None]
  - VOMITING [None]
  - DIZZINESS [None]
  - IMPAIRED WORK ABILITY [None]
  - HYPERHIDROSIS [None]
  - SLEEP TALKING [None]
  - VERTIGO [None]
  - PARAESTHESIA [None]
  - CHEST PAIN [None]
  - IRRITABILITY [None]
  - DRY MOUTH [None]
  - INSOMNIA [None]
  - NAUSEA [None]
  - HEADACHE [None]
  - ABDOMINAL PAIN UPPER [None]
  - PHOTOSENSITIVITY REACTION [None]
  - ANXIETY [None]
  - CRYING [None]
  - SLEEP DISORDER [None]
  - BALANCE DISORDER [None]
  - AGITATION [None]
  - NIGHTMARE [None]
  - IMPAIRED DRIVING ABILITY [None]
